FAERS Safety Report 25872654 (Version 2)
Quarter: 2025Q4

REPORT INFORMATION
  Report Type: Spontaneous
  Country: US (occurrence: US)
  Receive Date: 20251002
  Receipt Date: 20251010
  Transmission Date: 20260118
  Serious: No
  Sender: KARYOPHARM THERAPEUTICS
  Company Number: US-KARYOPHARM-2025KPT100785

PATIENT

DRUGS (17)
  1. SELINEXOR [Suspect]
     Active Substance: SELINEXOR
     Indication: Plasma cell myeloma refractory
     Dosage: 80 MG WEEKLY
     Route: 048
     Dates: start: 20250924
  2. ACETAMINOPHEN [Concomitant]
     Active Substance: ACETAMINOPHEN
  3. HYDROCORTISONE [Concomitant]
     Active Substance: HYDROCORTISONE
  4. CYCLOBENZAPRINE [Concomitant]
     Active Substance: CYCLOBENZAPRINE
  5. DEXAMETHASONE [Concomitant]
     Active Substance: DEXAMETHASONE
  6. EPINEPHRINE [Concomitant]
     Active Substance: EPINEPHRINE
  7. FENTANYL [Concomitant]
     Active Substance: FENTANYL
  8. GABAPENTIN [Concomitant]
     Active Substance: GABAPENTIN
  9. HYDROMORPHONE [Concomitant]
     Active Substance: HYDROMORPHONE
  10. KYPROLIS [Concomitant]
     Active Substance: CARFILZOMIB
  11. RETACRIT [Concomitant]
     Active Substance: EPOETIN ALFA-EPBX
  12. SEVELAMER [Concomitant]
     Active Substance: SEVELAMER
  13. TAMSULOSIN [Concomitant]
     Active Substance: TAMSULOSIN
  14. VALACYCLOVIR [Concomitant]
     Active Substance: VALACYCLOVIR HYDROCHLORIDE
  15. ZYPREXA [Concomitant]
     Active Substance: OLANZAPINE
  16. MONTELUKAST [Concomitant]
     Active Substance: MONTELUKAST
  17. LIDOCAINE [Concomitant]
     Active Substance: LIDOCAINE

REACTIONS (3)
  - Intellectual disability [Unknown]
  - Peripheral swelling [Recovered/Resolved]
  - Nausea [Recovered/Resolved]

NARRATIVE: CASE EVENT DATE: 20250101
